FAERS Safety Report 12110282 (Version 1)
Quarter: 2016Q1

REPORT INFORMATION
  Report Type: Spontaneous
  Country: US (occurrence: None)
  Receive Date: 20160223
  Receipt Date: 20160223
  Transmission Date: 20160526
  Serious: No
  Sender: FDA-Public Use
  Company Number: None

PATIENT
  Age: 45 Year
  Sex: Female

DRUGS (1)
  1. SIMPONI [Suspect]
     Active Substance: GOLIMUMAB
     Indication: LABORATORY TEST ABNORMAL
     Route: 058
     Dates: start: 20160118

REACTIONS (2)
  - Fibromyalgia [None]
  - Feeling abnormal [None]

NARRATIVE: CASE EVENT DATE: 20160215
